FAERS Safety Report 6191638-2 (Version None)
Quarter: 2009Q2

REPORT INFORMATION
  Report Type: 
  Country: None (occurrence: None)
  Receive Date: 20090515
  Receipt Date: 20090507
  Transmission Date: 20091009
  Serious: Yes (Other)
  Sender: FDA-Public Use
  Company Number: DE-PFIZER INC-2008097878

PATIENT
  Age: 60 Year

DRUGS (2)
  1. AROMASIN [Suspect]
     Route: 048
     Dates: start: 20050101
  2. CARBIMAZOLE [Concomitant]
     Route: 048

REACTIONS (2)
  - ALOPECIA [None]
  - HYPERTHYROIDISM [None]
